FAERS Safety Report 10148884 (Version 2)
Quarter: 2014Q2

REPORT INFORMATION
  Report Type: Spontaneous
  Country: US (occurrence: US)
  Receive Date: 20140502
  Receipt Date: 20140623
  Transmission Date: 20141212
  Serious: No
  Sender: FDA-Public Use
  Company Number: US-009507513-1405USA000912

PATIENT
  Sex: 0

DRUGS (2)
  1. NASONEX [Suspect]
     Dosage: 1-2 SPRAYS IN EACH NOSTRIL TWICE DAILY, INTRA-NASAL
     Route: 045
     Dates: start: 2014
  2. NASONEX [Suspect]
     Dosage: 1-2 SPRAYS IN EACH NOSTRIL TWICE DAILY, INTRA-NASAL
     Route: 045
     Dates: start: 2011

REACTIONS (4)
  - Drug dose omission [Unknown]
  - Drug dose omission [Unknown]
  - Product quality issue [Unknown]
  - No adverse event [Unknown]
